FAERS Safety Report 14939452 (Version 5)
Quarter: 2019Q4

REPORT INFORMATION
  Report Type: Spontaneous
  Country: US (occurrence: US)
  Receive Date: 20180525
  Receipt Date: 20191008
  Transmission Date: 20200122
  Serious: Yes (Other)
  Sender: FDA-Public Use
  Company Number: US-PFIZER INC-2018209328

PATIENT
  Age: 76 Year
  Sex: Female
  Weight: 75 kg

DRUGS (18)
  1. HYDROCHLOROTHIAZIDE. [Concomitant]
     Active Substance: HYDROCHLOROTHIAZIDE
     Indication: BLOOD PRESSURE ABNORMAL
     Dosage: 25 MG, 1X/DAY
     Route: 048
  2. NEXIUM I.V. [Concomitant]
     Active Substance: ESOMEPRAZOLE SODIUM
     Dosage: UNK
     Dates: start: 2017
  3. XALKORI [Suspect]
     Active Substance: CRIZOTINIB
     Dosage: 250 MG, UNK
     Dates: start: 2018, end: 2018
  4. XALKORI [Suspect]
     Active Substance: CRIZOTINIB
     Dosage: 200 MG, 2X/DAY (200 MG CAPSULES TAKEN BY MOUTH TWICE DAILY)
     Route: 048
     Dates: start: 2018, end: 20180509
  5. FLUTICASONE PROPIONATE. [Concomitant]
     Active Substance: FLUTICASONE PROPIONATE
     Dosage: 50 UG, UNK
  6. XALKORI [Suspect]
     Active Substance: CRIZOTINIB
     Dosage: 250 MG, DAILY
     Dates: start: 201804
  7. ATORVASTATIN CALCIUM. [Concomitant]
     Active Substance: ATORVASTATIN CALCIUM
     Indication: BLOOD CHOLESTEROL ABNORMAL
     Dosage: 40 MG, 1X/DAY
     Route: 048
  8. DUREZOL [Concomitant]
     Active Substance: DIFLUPREDNATE
     Dosage: UNK
     Dates: start: 2018
  9. REMERON [Concomitant]
     Active Substance: MIRTAZAPINE
     Indication: SLEEP DISORDER
  10. RAMIPRIL. [Concomitant]
     Active Substance: RAMIPRIL
     Indication: BLOOD PRESSURE ABNORMAL
     Dosage: 5 MG, 1X/DAY
     Route: 048
  11. VENTOLIN HFA [Concomitant]
     Active Substance: ALBUTEROL SULFATE
     Dosage: 90 UG, UNK
     Dates: start: 2017
  12. XALKORI [Suspect]
     Active Substance: CRIZOTINIB
     Dosage: 500 MG, DAILY
     Dates: start: 201802, end: 201803
  13. SYNTHROID [Concomitant]
     Active Substance: LEVOTHYROXINE SODIUM
     Indication: THYROID DISORDER
     Dosage: 75 UG, 1X/DAY (75 UG TABLETS TAKEN ONCE A DAY)
     Route: 048
  14. REMERON [Concomitant]
     Active Substance: MIRTAZAPINE
     Indication: APPETITE DISORDER
     Dosage: 15 MG, 1X/DAY (15 MG TAKEN AT NIGHT AT BEDTIME ONCE DAILY)
     Dates: start: 2017
  15. PANTOPRAZOLE [Concomitant]
     Active Substance: PANTOPRAZOLE
     Dosage: 40 MG, 1X/DAY (40 MG TABLETS TAKEN ONCE DAILY)
     Route: 048
  16. XARELTO [Concomitant]
     Active Substance: RIVAROXABAN
     Dosage: UNK
     Dates: start: 201905
  17. XALKORI [Suspect]
     Active Substance: CRIZOTINIB
     Indication: LUNG ADENOCARCINOMA
     Dosage: 250 MG, 1X/DAY
     Dates: start: 201802, end: 2018
  18. ATENOLOL. [Concomitant]
     Active Substance: ATENOLOL
     Indication: BLOOD PRESSURE ABNORMAL
     Dosage: 25 MG, 1X/DAY
     Route: 048

REACTIONS (12)
  - Abdominal distension [Not Recovered/Not Resolved]
  - Vomiting [Recovered/Resolved]
  - Otorrhoea [Not Recovered/Not Resolved]
  - Auditory disorder [Unknown]
  - Renal impairment [Recovered/Resolved]
  - Blood potassium abnormal [Not Recovered/Not Resolved]
  - Blood pressure abnormal [Recovered/Resolved]
  - Eye discharge [Not Recovered/Not Resolved]
  - Visual impairment [Unknown]
  - Peripheral swelling [Not Recovered/Not Resolved]
  - Joint swelling [Not Recovered/Not Resolved]
  - Swelling face [Not Recovered/Not Resolved]

NARRATIVE: CASE EVENT DATE: 2018
